FAERS Safety Report 5192680-0 (Version None)
Quarter: 2006Q4

REPORT INFORMATION
  Report Type: 
  Country: None (occurrence: None)
  Receive Date: 20061220
  Receipt Date: 20061207
  Transmission Date: 20070319
  Serious: Yes (Other)
  Sender: FDA-Public Use
  Company Number: 233587

PATIENT
  Sex: Female

DRUGS (4)
  1. AVASTIN [Suspect]
     Indication: MACULAR DEGENERATION
     Dosage: INTRAVITREAL
     Dates: start: 20060201
  2. VYTORIN(EXETIMIBE, SIMVASTATIN) [Concomitant]
  3. ULTRAM [Concomitant]
  4. ETODOLAC [Concomitant]

REACTIONS (1)
  - HYPERTENSION [None]
